FAERS Safety Report 9390509 (Version 2)
Quarter: 2013Q4

REPORT INFORMATION
  Report Type: Spontaneous
  Country: GB (occurrence: GB)
  Receive Date: 20130709
  Receipt Date: 20131111
  Transmission Date: 20140711
  Serious: Yes (Hospitalization, Other)
  Sender: FDA-Public Use
  Company Number: GB-ACCORD-018356

PATIENT
  Age: 48 Year
  Sex: Male

DRUGS (19)
  1. QUETIAPINE FUMARATE [Suspect]
     Indication: BIPOLAR DISORDER
     Route: 048
     Dates: start: 20130522
  2. FLUTICASONE [Concomitant]
     Route: 055
  3. SALBUTAMOL [Concomitant]
     Route: 055
  4. SALMETEROL [Concomitant]
     Route: 055
  5. PREGABALIN [Concomitant]
  6. ZOPICLONE [Concomitant]
  7. ANGITIL [Concomitant]
     Dosage: XL
  8. NYSTATIN [Concomitant]
  9. TOLTERODINE [Concomitant]
  10. GABAPENTIN [Concomitant]
     Dosage: AS REQUIRED
  11. OMEPRAZOLE [Concomitant]
  12. ASPIRIN [Concomitant]
  13. TRAMADOL [Concomitant]
     Dosage: AS REQUIRED
  14. MOMETASONE [Concomitant]
  15. CHLORHEXIDINE [Concomitant]
  16. IBUPROFEN [Concomitant]
     Dosage: AS REQUIRED
  17. MONTELUKAST [Concomitant]
     Dosage: AT NIGHT
  18. ATORVASTATIN [Concomitant]
  19. LAMOTRIGINE [Concomitant]
     Dosage: 100 MG MORNING, 150MG AT NIGHT

REACTIONS (7)
  - Muscular weakness [Recovering/Resolving]
  - Dysarthria [Recovering/Resolving]
  - Facial paresis [Recovering/Resolving]
  - Transient ischaemic attack [Unknown]
  - Vision blurred [Unknown]
  - Vertigo [Unknown]
  - Dizziness [Unknown]
